FAERS Safety Report 11060960 (Version 1)
Quarter: 2015Q2

REPORT INFORMATION
  Report Type: Spontaneous
  Country: US (occurrence: US)
  Receive Date: 20150424
  Receipt Date: 20150424
  Transmission Date: 20150821
  Serious: Yes (Hospitalization, Other)
  Sender: FDA-Public Use
  Company Number: US-ASTRAZENECA-2015SE35950

PATIENT
  Age: 836 Month
  Sex: Male

DRUGS (13)
  1. IMODIUM A-D [Concomitant]
     Active Substance: LOPERAMIDE HYDROCHLORIDE
     Dosage: OCCASIONAL USE
  2. VITAMIN C [Concomitant]
     Active Substance: ASCORBIC ACID
  3. AMLODIPINE [Concomitant]
     Active Substance: AMLODIPINE BESYLATE
     Dates: start: 201409
  4. SUTENT [Concomitant]
     Active Substance: SUNITINIB MALATE
     Indication: METASTASIS
     Dates: start: 201408
  5. METOPROLOL [Concomitant]
     Active Substance: METOPROLOL
     Dates: start: 201410, end: 20150408
  6. PRILOSEC [Suspect]
     Active Substance: OMEPRAZOLE MAGNESIUM
     Route: 048
  7. ZINC [Concomitant]
     Active Substance: ZINC\ZINC CHLORIDE
  8. BOWEL FORMULA 1 [Concomitant]
  9. COMPAZINE [Concomitant]
     Active Substance: PROCHLORPERAZINE MALEATE
  10. VITAMIN D3 [Concomitant]
     Active Substance: CHOLECALCIFEROL
  11. SAW PALMETTO [Concomitant]
     Active Substance: SAW PALMETTO
  12. MEGA RED KRILL OIL [Concomitant]
  13. RED YEAST RICE [Concomitant]
     Active Substance: DIETARY SUPPLEMENT

REACTIONS (12)
  - Dysgeusia [Not Recovered/Not Resolved]
  - Dyspepsia [Not Recovered/Not Resolved]
  - Pain [Recovering/Resolving]
  - Blood pressure fluctuation [Unknown]
  - Hyperhidrosis [Recovered/Resolved]
  - Skin lesion [Not Recovered/Not Resolved]
  - Hypertension [Recovered/Resolved]
  - Fatigue [Not Recovered/Not Resolved]
  - Blood creatinine abnormal [Not Recovered/Not Resolved]
  - Pruritus [Recovered/Resolved]
  - Chills [Recovered/Resolved]
  - Liver function test abnormal [Unknown]

NARRATIVE: CASE EVENT DATE: 201407
